FAERS Safety Report 5495201-8 (Version None)
Quarter: 2007Q4

REPORT INFORMATION
  Report Type: 
  Country: None (occurrence: None)
  Receive Date: 20071024
  Receipt Date: 20070724
  Transmission Date: 20080405
  Serious: No
  Sender: FDA-Public Use
  Company Number: US-AMGEN-US235545

PATIENT
  Sex: Male
  Weight: 86.3 kg

DRUGS (5)
  1. VECTIBIX [Suspect]
     Indication: COLORECTAL CANCER
     Dates: start: 20070301
  2. CLINDAMYCIN HCL [Concomitant]
     Route: 061
  3. XELODA [Concomitant]
  4. LOMOTIL [Concomitant]
  5. TINCTURE OF OPIUM [Concomitant]

REACTIONS (3)
  - DERMATITIS ACNEIFORM [None]
  - NAIL BED INFLAMMATION [None]
  - ONYCHALGIA [None]
